FAERS Safety Report 9499534 (Version 2)
Quarter: 2013Q3

REPORT INFORMATION
  Report Type: Spontaneous
  Country: IT (occurrence: IT)
  Receive Date: 20130905
  Receipt Date: 20130909
  Transmission Date: 20140515
  Serious: Yes (Other)
  Sender: FDA-Public Use
  Company Number: IT-RANBAXY-2013RR-72944

PATIENT
  Age: 79 Year
  Sex: Female

DRUGS (6)
  1. LORAZEPAM DOROM [Suspect]
     Indication: DEPRESSION
     Dosage: 1 DF DAILY
     Route: 048
     Dates: start: 20130101, end: 20130616
  2. TAVOR [Suspect]
     Indication: DEPRESSION
     Dosage: 1 DF, PRN
     Route: 048
     Dates: start: 20130101, end: 20130616
  3. LORMETAZEPAM [Suspect]
     Indication: DEPRESSION
     Dosage: 10 GTT DAILY
     Route: 048
     Dates: start: 20130101, end: 20130616
  4. LANSOX [Concomitant]
     Indication: PRODUCT USED FOR UNKNOWN INDICATION
     Dosage: UNK
     Route: 065
  5. CARDIOASPIRIN [Concomitant]
     Indication: PRODUCT USED FOR UNKNOWN INDICATION
     Dosage: UNK
     Route: 065
  6. ENALAPRIL [Concomitant]
     Indication: PRODUCT USED FOR UNKNOWN INDICATION
     Dosage: UNK
     Route: 065

REACTIONS (4)
  - Dizziness [Unknown]
  - Head injury [Unknown]
  - Wrist fracture [Unknown]
  - Contusion [Unknown]
